FAERS Safety Report 4646737-0 (Version None)
Quarter: 2005Q2

REPORT INFORMATION
  Report Type: 
  Country: None (occurrence: None)
  Receive Date: 20050427
  Receipt Date: 20050420
  Transmission Date: 20051028
  Serious: Yes (Hospitalization)
  Sender: FDA-Public Use
  Company Number: SE-GLAXOSMITHKLINE-B0379122A

PATIENT
  Age: 81 Year
  Sex: Female

DRUGS (7)
  1. VALTREX [Suspect]
     Indication: HERPES ZOSTER
     Dosage: 500MG UNKNOWN
     Route: 048
     Dates: start: 20050304, end: 20050307
  2. CITALOPRAM HYDROBROMIDE [Concomitant]
  3. ACETAMINOPHEN [Concomitant]
  4. SODIUM PICOSULFATE [Concomitant]
     Route: 048
  5. METOPROLOL TARTRATE [Concomitant]
  6. KALCIPOS-D [Concomitant]
  7. MACROGOL 4000 [Concomitant]
     Route: 048

REACTIONS (5)
  - APHASIA [None]
  - CONFUSIONAL STATE [None]
  - RENAL FAILURE [None]
  - RESIDUAL URINE VOLUME [None]
  - URINARY TRACT INFECTION [None]
